FAERS Safety Report 9775627 (Version 2)
Quarter: 2013Q4

REPORT INFORMATION
  Report Type: Spontaneous
  Country: DE (occurrence: DE)
  Receive Date: 20131220
  Receipt Date: 20131220
  Transmission Date: 20140711
  Serious: Yes (Other)
  Sender: FDA-Public Use
  Company Number: DE-MALLINCKRODT-T201304923

PATIENT
  Sex: Female

DRUGS (1)
  1. OPTIRAY 350 [Suspect]
     Indication: COMPUTERISED TOMOGRAM
     Dosage: UNK
     Route: 042
     Dates: start: 20131118, end: 20131118

REACTIONS (4)
  - Abscess limb [Recovered/Resolved]
  - Injection site vesicles [Recovered/Resolved]
  - Injection site extravasation [Recovered/Resolved]
  - Drug administration error [Recovered/Resolved]
